FAERS Safety Report 6105141-9 (Version None)
Quarter: 2009Q1

REPORT INFORMATION
  Report Type: 
  Country: None (occurrence: None)
  Receive Date: 20090306
  Receipt Date: 20090303
  Transmission Date: 20090719
  Serious: Yes (Hospitalization)
  Sender: FDA-Public Use
  Company Number: US-BIOGENIDEC-2008BI029351

PATIENT
  Age: 64 Year
  Sex: Male

DRUGS (2)
  1. TYSABRI [Suspect]
     Indication: MULTIPLE SCLEROSIS
     Route: 042
     Dates: start: 20070612
  2. CYMBALTA [Concomitant]

REACTIONS (6)
  - ASTHENIA [None]
  - CELLULITIS STAPHYLOCOCCAL [None]
  - CONFUSIONAL STATE [None]
  - FALL [None]
  - PYELONEPHRITIS [None]
  - SERRATIA INFECTION [None]
